FAERS Safety Report 4834600-1 (Version None)
Quarter: 2005Q4

REPORT INFORMATION
  Report Type: 
  Country: None (occurrence: None)
  Receive Date: 20051122
  Receipt Date: 20050504
  Transmission Date: 20060501
  Serious: No
  Sender: FDA-Public Use
  Company Number: US-BRISTOL-MYERS SQUIBB COMPANY-12956009

PATIENT
  Age: 78 Year
  Sex: Female
  Weight: 48 kg

DRUGS (3)
  1. PRAVACHOL [Suspect]
     Indication: CAROTID ARTERY DISEASE
     Dates: start: 20050403
  2. FOSAMAX [Concomitant]
  3. MOBIC [Concomitant]

REACTIONS (1)
  - VAGINAL DISCHARGE [None]
